FAERS Safety Report 8824992 (Version 1)
Quarter: 2012Q4

REPORT INFORMATION
  Report Type: Report from Study
  Country: JP (occurrence: JP)
  Receive Date: 20121004
  Receipt Date: 20121004
  Transmission Date: 20130627
  Serious: Yes (Other)
  Sender: FDA-Public Use
  Company Number: JP-009507513-1207JPN008149

PATIENT
  Age: 58 Year
  Sex: Female
  Weight: 67 kg

DRUGS (21)
  1. PEGINTRON [Suspect]
     Indication: HEPATITIS C
     Dosage: 1.5 Microgram per kilogram, UNK
     Route: 058
     Dates: start: 20120604, end: 20120709
  2. PEGINTRON [Suspect]
     Dosage: 1.5 Microgram per kilogram, UNK
     Route: 058
     Dates: start: 20120717
  3. PEGINTRON [Suspect]
     Dosage: 1.5 Microgram per kilogram, UNK
     Route: 058
     Dates: start: 20120723
  4. REBETOL [Suspect]
     Indication: HEPATITIS C
     Dosage: 800 mg, qd
     Route: 048
     Dates: start: 20120604, end: 20120625
  5. REBETOL [Suspect]
     Dosage: 600 mg, qd
     Route: 048
     Dates: start: 20120625, end: 20120702
  6. REBETOL [Suspect]
     Dosage: 200 mg, qd
     Route: 048
     Dates: start: 20120702, end: 20120703
  7. REBETOL [Suspect]
     Dosage: 200 mg, qd
     Route: 048
     Dates: start: 20120730, end: 20120813
  8. REBETOL [Suspect]
     Dosage: 400 mg, qd
     Route: 048
     Dates: start: 20120814, end: 20120903
  9. REBETOL [Suspect]
     Dosage: 200 mg, qd
     Route: 048
     Dates: start: 20120904
  10. TELAVIC [Suspect]
     Indication: HEPATITIS C
     Dosage: 2250 mg, qd
     Route: 048
     Dates: start: 20120604, end: 20120606
  11. TELAVIC [Suspect]
     Dosage: 1500 mg, qd
     Route: 048
     Dates: start: 20120607, end: 20120709
  12. TELAVIC [Suspect]
     Dosage: 500 mg, qd
     Route: 048
     Dates: start: 20120717, end: 20120723
  13. TELAVIC [Suspect]
     Dosage: 1000 mg, qd
     Route: 048
     Dates: start: 20120723, end: 20120805
  14. TELAVIC [Suspect]
     Dosage: 1500 mg, qd
     Route: 048
     Dates: start: 20120806
  15. XYZAL [Concomitant]
     Indication: HEPATITIS C
     Dosage: 5 mg, qd
     Route: 048
     Dates: start: 20120605
  16. CELESTAMINE (BETAMETHASONE (+) DEXCHLORPHENIRAMINE MALEATE) [Concomitant]
     Indication: HEPATITIS C
     Dosage: 3 DF, qd
     Route: 048
     Dates: start: 20120605
  17. ALOSITOL [Concomitant]
     Indication: HEPATITIS C
     Dosage: 100 mg, qd
     Route: 048
     Dates: start: 20120618
  18. TOWARAT L [Concomitant]
     Route: 048
  19. MICARDIS [Concomitant]
     Route: 048
  20. FAMOTIDINE D [Concomitant]
     Route: 048
  21. NEXIUM [Concomitant]
     Indication: PROPHYLAXIS
     Dosage: UNK
     Route: 048
     Dates: start: 20120723

REACTIONS (2)
  - Hyperuricaemia [Recovered/Resolved]
  - Anaemia [Recovering/Resolving]
